FAERS Safety Report 8543845-9 (Version None)
Quarter: 2012Q3

REPORT INFORMATION
  Report Type: 
  Country: None (occurrence: None)
  Receive Date: 20120727
  Receipt Date: 20120723
  Transmission Date: 20120928
  Serious: No
  Sender: FDA-Public Use
  Company Number: US-B.I. PHARMACEUTICALS,INC./RIDGEFIELD-2011-BP-25506BP

PATIENT
  Sex: Female
  Weight: 49.44 kg

DRUGS (14)
  1. CARTIA XT [Concomitant]
     Dosage: 240 MG
  2. MULTIVITAMIN [Concomitant]
     Indication: SUPPLEMENTATION THERAPY
  3. LOVAZA [Concomitant]
     Indication: BLOOD TRIGLYCERIDES INCREASED
  4. MULTI-VITAMINS [Concomitant]
     Indication: SUPPLEMENTATION THERAPY
  5. CALCIUM [Concomitant]
     Indication: SUPPLEMENTATION THERAPY
  6. BIOTENE [Concomitant]
     Indication: SUPPLEMENTATION THERAPY
  7. CLARITIN [Concomitant]
  8. FISH OIL [Concomitant]
     Indication: BLOOD TRIGLYCERIDES INCREASED
  9. COSAMIN DS [Concomitant]
     Indication: ARTHRITIS
  10. FIBER CHOICE [Concomitant]
  11. SIMVASTATIN [Concomitant]
     Indication: BLOOD CHOLESTEROL INCREASED
     Dates: end: 20120101
  12. LEVOTHYROXINE SODIUM [Concomitant]
     Indication: THYROID DISORDER
     Dosage: 75 MCG
  13. PRADAXA [Suspect]
     Indication: ATRIAL FIBRILLATION
     Dosage: 300 MG
     Route: 048
     Dates: start: 20110520
  14. VITAMIN D [Concomitant]
     Indication: SUPPLEMENTATION THERAPY
     Dosage: 2000 U

REACTIONS (5)
  - HIGH DENSITY LIPOPROTEIN INCREASED [None]
  - BLOOD CHOLESTEROL INCREASED [None]
  - LOW DENSITY LIPOPROTEIN INCREASED [None]
  - BLOOD TRIGLYCERIDES INCREASED [None]
  - BLOOD CREATININE INCREASED [None]
